FAERS Safety Report 8165787-3 (Version None)
Quarter: 2012Q1

REPORT INFORMATION
  Report Type: 
  Country: None (occurrence: None)
  Receive Date: 20120227
  Receipt Date: 20110208
  Transmission Date: 20120608
  Serious: No
  Sender: FDA-Public Use
  Company Number: US-MYLANLABS-2011S1002707

PATIENT
  Age: 19 Year
  Sex: Female

DRUGS (3)
  1. YAZ /01502501/ [Concomitant]
     Indication: CONTRACEPTION
  2. AMNESTEEM [Suspect]
     Indication: ACNE
     Dates: end: 20110104
  3. PROAIR HFA [Concomitant]
     Indication: ASTHMA

REACTIONS (2)
  - BLOOD CHOLESTEROL INCREASED [None]
  - BLOOD TRIGLYCERIDES INCREASED [None]
